FAERS Safety Report 5832696-1 (Version None)
Quarter: 2008Q3

REPORT INFORMATION
  Report Type: 
  Country: None (occurrence: None)
  Receive Date: 20080804
  Receipt Date: 20080804
  Transmission Date: 20090109
  Serious: Yes (Hospitalization)
  Sender: FDA-Public Use
  Company Number: PHEH1999US04476

PATIENT
  Sex: Male
  Weight: 106 kg

DRUGS (2)
  1. RAD 666 RAD+ [Suspect]
     Dosage: 0.75 MG, BID
     Route: 048
     Dates: start: 19990921, end: 19990926
  2. NEORAL [Suspect]
     Route: 048
     Dates: start: 19990921, end: 19990925

REACTIONS (1)
  - RENAL FAILURE ACUTE [None]
